FAERS Safety Report 15402618 (Version 1)
Quarter: 2018Q3

REPORT INFORMATION
  Report Type: Spontaneous
  Country: MM (occurrence: MM)
  Receive Date: 20180919
  Receipt Date: 20180919
  Transmission Date: 20181010
  Serious: Yes (Death, Other)
  Sender: FDA-Public Use
  Company Number: MM-JNJFOC-20180910423

PATIENT
  Age: 28 Year
  Sex: Female
  Weight: 32 kg

DRUGS (11)
  1. IMIPENEM [Suspect]
     Active Substance: IMIPENEM
     Indication: TUBERCULOSIS
     Route: 042
     Dates: start: 20180824, end: 20180907
  2. GELMAG [Concomitant]
     Indication: VOMITING
     Route: 048
     Dates: start: 20180830, end: 20180907
  3. NYSTATIN. [Concomitant]
     Active Substance: NYSTATIN
     Indication: ORAL CANDIDIASIS
     Route: 048
     Dates: start: 20180905, end: 20180907
  4. AMOXICILLIN W/CLAVULANIC ACID [Suspect]
     Active Substance: AMOXICILLIN\CLAVULANIC ACID
     Indication: TUBERCULOSIS
     Route: 048
     Dates: start: 20180824, end: 20180907
  5. CALCIVITA [Concomitant]
     Indication: HYPOCALCAEMIA
     Route: 048
     Dates: start: 20180828, end: 20180907
  6. DELAMANID [Suspect]
     Active Substance: DELAMANID
     Indication: TUBERCULOSIS
     Route: 048
     Dates: start: 20180824, end: 20180907
  7. PARA?AMINOSALICYLIC ACID [Suspect]
     Active Substance: AMINOSALICYLIC ACID
     Indication: TUBERCULOSIS
     Route: 048
     Dates: start: 20180824, end: 20180907
  8. LINEZOLID. [Suspect]
     Active Substance: LINEZOLID
     Indication: TUBERCULOSIS
     Route: 048
     Dates: start: 20180824, end: 20180907
  9. BEDAQUILINE [Suspect]
     Active Substance: BEDAQUILINE
     Indication: TUBERCULOSIS
     Route: 048
     Dates: start: 20180824, end: 20180907
  10. LEVOFLOXACIN. [Suspect]
     Active Substance: LEVOFLOXACIN
     Indication: TUBERCULOSIS
     Route: 048
     Dates: start: 20180824, end: 20180907
  11. POTASSIUM CHLORIDE. [Concomitant]
     Active Substance: POTASSIUM CHLORIDE
     Indication: HYPOKALAEMIA
     Route: 048
     Dates: start: 20180827, end: 20180907

REACTIONS (4)
  - Ventricular extrasystoles [Fatal]
  - Electrocardiogram QT prolonged [Unknown]
  - Electrocardiogram abnormal [Unknown]
  - Tuberculosis [Fatal]

NARRATIVE: CASE EVENT DATE: 20180907
